FAERS Safety Report 7032413-6 (Version None)
Quarter: 2010Q4

REPORT INFORMATION
  Report Type: 
  Country: None (occurrence: None)
  Receive Date: 20101007
  Receipt Date: 20101001
  Transmission Date: 20110411
  Serious: Yes (Death)
  Sender: FDA-Public Use
  Company Number: US-ALEXION-A201000008

PATIENT
  Sex: Female

DRUGS (13)
  1. SOLIRIS [Suspect]
     Indication: PAROXYSMAL NOCTURNAL HAEMOGLOBINURIA
     Dosage: 600 MG, QW
     Route: 042
     Dates: start: 20081017, end: 20081107
  2. SOLIRIS [Suspect]
     Dosage: 900 MG, Q2W
     Route: 042
     Dates: start: 20081114, end: 20091231
  3. DECITABINE [Concomitant]
     Indication: ACUTE MYELOID LEUKAEMIA
     Dosage: UNK
     Dates: start: 20091207, end: 20091210
  4. DIGOXIN [Concomitant]
     Dosage: 250 UG, QD
     Route: 048
  5. NORVASC [Concomitant]
     Dosage: 5 MG, QD
     Route: 048
  6. CALCIUM D3                         /00944201/ [Concomitant]
     Dosage: 600 MG, QD
     Route: 048
  7. CIPROFLOXACIN [Concomitant]
     Dosage: 500 MG, BID
     Route: 048
  8. FLONASE [Concomitant]
     Dosage: 50 UG, 2 SPRAYS QD
     Route: 045
  9. FOLIC ACID [Concomitant]
     Dosage: 1 MG, QD
     Route: 048
  10. METOPROLOL TARTRATE [Concomitant]
     Dosage: 50 MG, TID
     Route: 048
  11. MULTI-VITAMINS [Concomitant]
     Dosage: 1 TABLET
     Route: 048
  12. OMEPRAZOLE [Concomitant]
     Dosage: 20 MG, QD
  13. PROCRIT                            /00909301/ [Concomitant]
     Dosage: 40000 UT, QWK

REACTIONS (5)
  - ACUTE LEUKAEMIA [None]
  - ATRIAL FIBRILLATION [None]
  - BLOOD CULTURE POSITIVE [None]
  - ESCHERICHIA INFECTION [None]
  - PANCYTOPENIA [None]
